FAERS Safety Report 11692733 (Version 4)
Quarter: 2016Q1

REPORT INFORMATION
  Report Type: Report from Study
  Country: NL (occurrence: NL)
  Receive Date: 20151103
  Receipt Date: 20160105
  Transmission Date: 20160525
  Serious: Yes (Other)
  Sender: FDA-Public Use
  Company Number: NL-AMGEN-NLDSL2015114344

PATIENT
  Age: 65 Year
  Sex: Female

DRUGS (13)
  1. OMEPRAZOL                          /00661201/ [Concomitant]
     Active Substance: OMEPRAZOLE
     Dosage: 40 MG, QD
     Dates: start: 20151211
  2. DEXAMETHASON                       /00016001/ [Concomitant]
     Active Substance: DEXAMETHASONE
     Dosage: 4 MG, QD
     Dates: start: 20151230
  3. XGEVA [Suspect]
     Active Substance: DENOSUMAB
     Indication: BREAST CANCER METASTATIC
     Dosage: 120 MG, Q3WK
     Route: 058
     Dates: start: 20130717
  4. SODIUM LAURYL SULFATE W/SORBITOL [Concomitant]
     Dosage: 9/625 MG/ML
     Dates: start: 20151211
  5. OXYCODON [Concomitant]
     Active Substance: OXYCODONE
     Dosage: 5 MG, QD
     Dates: start: 20151211
  6. XGEVA [Suspect]
     Active Substance: DENOSUMAB
     Dosage: UNK
     Route: 058
  7. TAXOTERE [Concomitant]
     Active Substance: DOCETAXEL
     Indication: BREAST CANCER METASTATIC
  8. HERCEPTIN [Concomitant]
     Active Substance: TRASTUZUMAB
     Indication: BREAST CANCER METASTATIC
  9. CALCIUM CARBONATE W/COLECALCIFEROL [Concomitant]
     Active Substance: CALCIUM CARBONATE\CHOLECALCIFEROL
     Dosage: 500 MG (1.25G/440IE), QD
     Dates: start: 20150623
  10. CIPROFLOXACINE                     /00697201/ [Concomitant]
     Active Substance: CIPROFLOXACIN
     Dosage: 750 MG, QD
     Route: 048
     Dates: start: 20151026, end: 20151026
  11. SODIUM PHOSPHATE [Concomitant]
     Active Substance: SODIUM PHOSPHATE
     Dosage: UNK UNK, QD
     Dates: start: 20151211
  12. METOCLOPRAMIDE. [Concomitant]
     Active Substance: METOCLOPRAMIDE
     Dosage: 10 MG, QD
     Dates: start: 20151211
  13. PANTOPRAZOL [Concomitant]
     Active Substance: PANTOPRAZOLE SODIUM
     Dosage: 40 MG, QD
     Route: 048
     Dates: start: 20151023

REACTIONS (11)
  - Intentional product misuse [Unknown]
  - Breast cancer metastatic [Unknown]
  - Oesophagitis [Unknown]
  - Stomach mass [Unknown]
  - Hydronephrosis [Unknown]
  - Cholangitis [Unknown]
  - Gastrooesophageal reflux disease [Unknown]
  - Metastases to pancreas [Unknown]
  - Metastases to bone [Unknown]
  - Malignant neoplasm progression [Unknown]
  - Pleural effusion [Unknown]

NARRATIVE: CASE EVENT DATE: 20131126
